FAERS Safety Report 9523551 (Version 2)
Quarter: 2013Q4

REPORT INFORMATION
  Report Type: Spontaneous
  Country: US (occurrence: US)
  Receive Date: 20130913
  Receipt Date: 20131001
  Transmission Date: 20140711
  Serious: Yes (Hospitalization)
  Sender: FDA-Public Use
  Company Number: US-BAXTER-2013BAX036160

PATIENT
  Age: 57 Year
  Sex: Male

DRUGS (6)
  1. DIANEAL LOW CALCIUM [Suspect]
     Indication: PERITONEAL DIALYSIS
     Route: 033
     Dates: start: 2010, end: 201301
  2. DIANEAL LOW CALCIUM [Suspect]
     Route: 033
     Dates: start: 2013
  3. DIANEAL LOW CALCIUM [Suspect]
     Indication: PERITONEAL DIALYSIS
     Route: 033
     Dates: start: 2010, end: 201301
  4. DIANEAL LOW CALCIUM [Suspect]
     Route: 033
     Dates: start: 2013
  5. EXTRANEAL [Suspect]
     Indication: PERITONEAL DIALYSIS
     Route: 033
     Dates: start: 2010, end: 201301
  6. EXTRANEAL [Suspect]
     Route: 033
     Dates: start: 2013

REACTIONS (1)
  - Catheter site infection [Recovered/Resolved]
